FAERS Safety Report 6704095-1 (Version None)
Quarter: 2010Q2

REPORT INFORMATION
  Report Type: 
  Country: None (occurrence: None)
  Receive Date: 20100430
  Receipt Date: 20100420
  Transmission Date: 20101027
  Serious: Yes (Hospitalization)
  Sender: FDA-Public Use
  Company Number: US-WATSON-2010-05311

PATIENT
  Age: 23 Year
  Sex: Female
  Weight: 59 kg

DRUGS (1)
  1. MINOCYCLINE HCL [Suspect]
     Indication: ACNE
     Dosage: 100 MG, DAILY X 4 MONTHS
     Route: 048
     Dates: start: 20091201, end: 20100323

REACTIONS (13)
  - ERYTHEMA OF EYELID [None]
  - EXOPHTHALMOS [None]
  - EXTRAOCULAR MUSCLE DISORDER [None]
  - EYELID OEDEMA [None]
  - FATIGUE [None]
  - GRAND MAL CONVULSION [None]
  - INCOHERENT [None]
  - MUSCLE CONTRACTURE [None]
  - PYREXIA [None]
  - TONGUE BITING [None]
  - TREMOR [None]
  - TRISMUS [None]
  - UNRESPONSIVE TO STIMULI [None]
